FAERS Safety Report 22105903 (Version 2)
Quarter: 2023Q2

REPORT INFORMATION
  Report Type: Spontaneous
  Country: US (occurrence: US)
  Receive Date: 20230317
  Receipt Date: 20230509
  Transmission Date: 20230721
  Serious: No
  Sender: FDA-Public Use
  Company Number: US-SANOFI-01527839

PATIENT
  Age: 60 Year
  Sex: Female

DRUGS (2)
  1. DUPIXENT [Suspect]
     Active Substance: DUPILUMAB
     Indication: Eczema
     Dosage: UNK
     Route: 058
     Dates: start: 20230310
  2. DUPIXENT [Suspect]
     Active Substance: DUPILUMAB
     Indication: Asthma
     Dosage: 300 MG, QOW
     Route: 058

REACTIONS (20)
  - Injection site pain [Unknown]
  - Influenza [Unknown]
  - Sinus headache [Unknown]
  - Migraine [Unknown]
  - Nasal congestion [Unknown]
  - Respiratory tract congestion [Unknown]
  - Insomnia [Unknown]
  - Confusional state [Unknown]
  - Fatigue [Unknown]
  - COVID-19 [Unknown]
  - Chills [Unknown]
  - Pain in extremity [Unknown]
  - Peripheral swelling [Unknown]
  - Arthritis [Unknown]
  - Sinus disorder [Unknown]
  - Musculoskeletal stiffness [Unknown]
  - Erythema [Unknown]
  - Skin exfoliation [Unknown]
  - Pruritus [Unknown]
  - Accidental exposure to product [Unknown]

NARRATIVE: CASE EVENT DATE: 20230101
